FAERS Safety Report 9660958 (Version 1)
Quarter: 2013Q4

REPORT INFORMATION
  Report Type: Spontaneous
  Country: PT (occurrence: PT)
  Receive Date: 20131031
  Receipt Date: 20131031
  Transmission Date: 20140711
  Serious: Yes (Hospitalization, Other)
  Sender: FDA-Public Use
  Company Number: PT-JHP PHARMACEUTICALS, LLC-JHP201300654

PATIENT
  Age: 27 Year
  Sex: Male

DRUGS (4)
  1. ADRENALIN CHLORIDE SOLUTION [Suspect]
     Dosage: APPLIED TO NASAL MUCOSA
  2. PENTOTHAL [Suspect]
     Indication: INDUCTION OF ANAESTHESIA
  3. FENTANYL [Suspect]
     Indication: INDUCTION OF ANAESTHESIA
  4. VECURONIUM [Suspect]
     Indication: INDUCTION OF ANAESTHESIA
     Dosage: UNK

REACTIONS (1)
  - Cardiogenic shock [Recovered/Resolved]
